FAERS Safety Report 6346284-4 (Version None)
Quarter: 2009Q3

REPORT INFORMATION
  Report Type: 
  Country: None (occurrence: None)
  Receive Date: 20090909
  Receipt Date: 20090831
  Transmission Date: 20100115
  Serious: Yes (Hospitalization, Other)
  Sender: FDA-Public Use
  Company Number: PHHY2009BR27045

PATIENT
  Sex: Female
  Weight: 99 kg

DRUGS (12)
  1. DIOVAN AMLO FIX [Suspect]
     Indication: HYPERTENSION
     Dosage: 1 DF (160/5 MG) PER DAY
     Route: 048
  2. LEVOTHYROXINE SODIUM [Concomitant]
     Indication: HYPOTHYROIDISM
     Dosage: 1 TABLET (175 MCG) FASTING
     Route: 048
     Dates: start: 19980101
  3. TANDRILAX [Concomitant]
     Indication: ARTHRALGIA
     Dosage: 1 TABLET WHEN NEEDED
     Route: 048
  4. HYDROCHLOROTHIAZIDE [Concomitant]
     Indication: POLYURIA
     Dosage: 1 TABLET (50 MG)/DAY
  5. SIMVASTATIN [Concomitant]
     Indication: BLOOD URIC ACID ABNORMAL
     Dosage: 1 TBALET (20 MG) PER DAY
  6. MAREVAN [Concomitant]
     Dosage: UNK
     Dates: start: 20090722
  7. SPIRONOLACTONE [Concomitant]
  8. LASIX [Concomitant]
     Dosage: 1 TABLET DAILY
  9. OMEPRAZOL [Concomitant]
  10. DIGOXIN [Concomitant]
     Indication: CARDIAC DISORDER
  11. EUTHYROX [Concomitant]
  12. HYGROTON [Concomitant]

REACTIONS (21)
  - ANXIETY [None]
  - ARRHYTHMIA [None]
  - ARTHRALGIA [None]
  - BACK PAIN [None]
  - BLOOD PRESSURE DECREASED [None]
  - CARDIOMEGALY [None]
  - CHEST DISCOMFORT [None]
  - CONDITION AGGRAVATED [None]
  - DIZZINESS [None]
  - DRUG INEFFECTIVE [None]
  - DRUG INTOLERANCE [None]
  - DYSPNOEA [None]
  - FALL [None]
  - HYPOTHYROIDISM [None]
  - JOINT DISLOCATION [None]
  - OEDEMA PERIPHERAL [None]
  - OSTEOARTHRITIS [None]
  - PROTHROMBIN TIME ABNORMAL [None]
  - PYREXIA [None]
  - SPINAL DISORDER [None]
  - URINARY RETENTION [None]
